FAERS Safety Report 8734584 (Version 2)
Quarter: 2012Q4

REPORT INFORMATION
  Report Type: 
  Country: US (occurrence: US)
  Receive Date: 20120821
  Receipt Date: 20120904
  Transmission Date: 20130627
  Serious: No
  Sender: FDA-Public Use
  Company Number: US-ROXANE LABORATORIES, INC.-2012-RO-01653RO

PATIENT
  Sex: Female

DRUGS (1)
  1. METHADONE [Suspect]

REACTIONS (2)
  - Drug ineffective [Unknown]
  - Product quality issue [Unknown]
